FAERS Safety Report 9019681 (Version 1)
Quarter: 2013Q1

REPORT INFORMATION
  Report Type: Report from Study
  Country: CL (occurrence: CL)
  Receive Date: 20130118
  Receipt Date: 20130118
  Transmission Date: 20140127
  Serious: Yes (Hospitalization)
  Sender: FDA-Public Use
  Company Number: CL-ROCHE-1179157

PATIENT
  Age: 82 Year
  Sex: Female
  Weight: 42 kg

DRUGS (1)
  1. CAPECITABINE [Suspect]
     Indication: COLON CANCER
     Dosage: 26/DEC/2012 TEMPORARLY SUSPENDED.
     Route: 048
     Dates: start: 20120707

REACTIONS (2)
  - Pain [Not Recovered/Not Resolved]
  - Delirium [Not Recovered/Not Resolved]
